FAERS Safety Report 11261281 (Version 9)
Quarter: 2016Q1

REPORT INFORMATION
  Report Type: Spontaneous
  Country: US (occurrence: US)
  Receive Date: 20150710
  Receipt Date: 20160104
  Transmission Date: 20160525
  Serious: Yes (Other)
  Sender: FDA-Public Use
  Company Number: US-PFIZER INC-2015227953

PATIENT
  Age: 47 Year
  Sex: Male
  Weight: 75 kg

DRUGS (3)
  1. SUTENT [Suspect]
     Active Substance: SUNITINIB MALATE
     Dosage: 37.5 MG, CYCLIC (2 WEEKS ON/1 WEEK OFF)
     Dates: start: 20150629, end: 20151222
  2. SUTENT [Suspect]
     Active Substance: SUNITINIB MALATE
     Indication: METASTATIC RENAL CELL CARCINOMA
     Dosage: 50 MG, CYCLIC (28 DAYS ON/14 DAYS OFF)
     Dates: start: 20150629, end: 20150807
  3. SUTENT [Suspect]
     Active Substance: SUNITINIB MALATE
     Dosage: 50 MG, CYCLIC (28 DAYS ON/14 DAYS OFF)
     Dates: start: 20150817

REACTIONS (27)
  - Headache [Unknown]
  - Metastatic renal cell carcinoma [Unknown]
  - Dyspnoea [Unknown]
  - Pruritus [Unknown]
  - Abdominal discomfort [Unknown]
  - Swelling face [Unknown]
  - Dry skin [Unknown]
  - Haematochezia [Unknown]
  - Disease progression [Unknown]
  - Vomiting [Unknown]
  - Emotional disorder [Unknown]
  - Cough [Unknown]
  - Paraesthesia [Unknown]
  - Decreased appetite [Recovering/Resolving]
  - Temperature intolerance [Unknown]
  - Chest discomfort [Recovered/Resolved]
  - Diarrhoea [Unknown]
  - Disturbance in attention [Unknown]
  - Depression [Unknown]
  - Nausea [Unknown]
  - Fatigue [Unknown]
  - Asthenia [Unknown]
  - Weight decreased [Recovering/Resolving]
  - Dizziness [Unknown]
  - Flatulence [Unknown]
  - Haemorrhoids [Unknown]
  - Yellow skin [Unknown]

NARRATIVE: CASE EVENT DATE: 2015
